FAERS Safety Report 9941846 (Version 1)
Quarter: 2014Q1

REPORT INFORMATION
  Report Type: Report from Study
  Country: US (occurrence: US)
  Receive Date: 20140303
  Receipt Date: 20140303
  Transmission Date: 20141002
  Serious: No
  Sender: FDA-Public Use
  Company Number: US-ABBVIE-13P-163-1042198-00

PATIENT
  Age: 26 Year
  Sex: Male

DRUGS (3)
  1. HUMIRA [Suspect]
     Indication: CROHN^S DISEASE
     Dates: start: 201210
  2. PROAIR [Concomitant]
     Indication: ASTHMA
  3. IRON + VITAMIN C [Concomitant]
     Indication: ANAEMIA
     Dosage: DAILY

REACTIONS (1)
  - Skin disorder [Not Recovered/Not Resolved]
